FAERS Safety Report 21424601 (Version 1)
Quarter: 2022Q4

REPORT INFORMATION
  Report Type: Spontaneous
  Country: US (occurrence: US)
  Receive Date: 20221007
  Receipt Date: 20221007
  Transmission Date: 20230113
  Serious: No
  Sender: FDA-Public Use
  Company Number: US-CELLTRION INC.-2022US001255

PATIENT

DRUGS (2)
  1. HERZUMA [Suspect]
     Active Substance: TRASTUZUMAB-PKRB
     Indication: Oestrogen receptor assay negative
     Dosage: 300 MG
     Dates: start: 20220131
  2. HERZUMA [Suspect]
     Active Substance: TRASTUZUMAB-PKRB
     Indication: Nausea

REACTIONS (3)
  - Oestrogen receptor assay negative [Unknown]
  - Nausea [Unknown]
  - Off label use [Unknown]
